FAERS Safety Report 10189890 (Version 1)
Quarter: 2014Q2

REPORT INFORMATION
  Report Type: Spontaneous
  Country: US (occurrence: US)
  Receive Date: 20140522
  Receipt Date: 20140522
  Transmission Date: 20141212
  Serious: Yes (Other)
  Sender: FDA-Public Use
  Company Number: US-SA-2014SA006655

PATIENT
  Age: 64 Year
  Sex: Male

DRUGS (3)
  1. LANTUS SOLOSTAR [Suspect]
     Dosage: DOSE:44 UNIT(S)
     Route: 051
  2. SOLOSTAR [Concomitant]
  3. HUMALOG [Concomitant]

REACTIONS (2)
  - Cataract [Unknown]
  - Visual impairment [Unknown]
